FAERS Safety Report 25205376 (Version 2)
Quarter: 2025Q2

REPORT INFORMATION
  Report Type: Spontaneous
  Country: FR (occurrence: FR)
  Receive Date: 20250417
  Receipt Date: 20250505
  Transmission Date: 20250717
  Serious: Yes (Other)
  Sender: ORGANON
  Company Number: FR-ORGANON-O2504FRA001573

PATIENT
  Sex: Female
  Weight: 71 kg

DRUGS (2)
  1. NEXPLANON [Suspect]
     Active Substance: ETONOGESTREL
     Indication: Contraception
     Route: 059
     Dates: start: 20250318, end: 20250424
  2. IRON [Concomitant]
     Active Substance: IRON

REACTIONS (3)
  - Vaginal haemorrhage [Not Recovered/Not Resolved]
  - Fatigue [Not Recovered/Not Resolved]
  - Device implantation error [Recovered/Resolved]

NARRATIVE: CASE EVENT DATE: 20250101
